FAERS Safety Report 12185139 (Version 1)
Quarter: 2016Q1

REPORT INFORMATION
  Report Type: Spontaneous
  Country: IT (occurrence: IT)
  Receive Date: 20160316
  Receipt Date: 20160316
  Transmission Date: 20160526
  Serious: Yes (Other)
  Sender: FDA-Public Use
  Company Number: IT-ELI_LILLY_AND_COMPANY-IT201603002179

PATIENT
  Age: 74 Year
  Sex: Male

DRUGS (12)
  1. DIFIX [Concomitant]
  2. ACETYLSALICYLIC ACID [Concomitant]
     Active Substance: ASPIRIN
  3. LENTO KALIUM [Concomitant]
     Active Substance: POTASSIUM CHLORIDE
  4. CALCIUM [Concomitant]
     Active Substance: CALCIUM
  5. SOTALEX [Concomitant]
     Active Substance: SOTALOL
  6. SPIRIVA [Concomitant]
     Active Substance: TIOTROPIUM BROMIDE MONOHYDRATE
  7. EPOETIN ZETA [Concomitant]
     Active Substance: ERYTHROPOIETIN
  8. HUMALOG [Suspect]
     Active Substance: INSULIN LISPRO
     Indication: DIABETES MELLITUS
     Dosage: 15 IU, QD
     Route: 058
     Dates: start: 20150101, end: 20150822
  9. LASIX [Concomitant]
     Active Substance: FUROSEMIDE
  10. LANTUS [Suspect]
     Active Substance: INSULIN GLARGINE
     Indication: DIABETES MELLITUS
     Dosage: 5 IU, QD
     Route: 058
     Dates: start: 20150101, end: 20150822
  11. PLAVIX [Concomitant]
     Active Substance: CLOPIDOGREL BISULFATE
  12. LANSOX [Concomitant]
     Active Substance: LANSOPRAZOLE

REACTIONS (3)
  - Hypoglycaemia [Recovering/Resolving]
  - Asthenia [Recovering/Resolving]
  - Ataxia [Recovering/Resolving]

NARRATIVE: CASE EVENT DATE: 20150822
